FAERS Safety Report 8618464-6 (Version None)
Quarter: 2012Q3

REPORT INFORMATION
  Report Type: 
  Country: None (occurrence: None)
  Receive Date: 20120810
  Receipt Date: 20120810
  Transmission Date: 20120928
  Serious: Yes (Other)
  Sender: FDA-Public Use
  Company Number: None

PATIENT
  Age: 61 Year
  Sex: Male
  Weight: 92.5 kg

DRUGS (10)
  1. CITALOPRAM HYDROBROMIDE [Concomitant]
  2. OLANZAPINE [Concomitant]
  3. DIVALPROEX SODIUM [Concomitant]
  4. CLOZAPINE [Suspect]
     Dosage: 150 MG HS PO
     Route: 048
  5. LAMOTRIGINE [Concomitant]
  6. DESMOPRESSIN ACETATE (DDAVP) [Concomitant]
  7. LEVOTHYROXINE SODIUM [Concomitant]
  8. AMANTADINE HCL [Concomitant]
  9. CLONAZEPAM [Concomitant]
  10. CLOZAPINE [Suspect]
     Indication: SCHIZOAFFECTIVE DISORDER
     Dosage: 75 MG Q AM PO
     Route: 048
     Dates: start: 20120702, end: 20120731

REACTIONS (1)
  - EOSINOPHILIA [None]
